FAERS Safety Report 8137510-X (Version None)
Quarter: 2012Q1

REPORT INFORMATION
  Report Type: 
  Country: None (occurrence: None)
  Receive Date: 20120215
  Receipt Date: 20120207
  Transmission Date: 20120608
  Serious: Yes (Hospitalization)
  Sender: FDA-Public Use
  Company Number: US-US-EMD SERONO, INC.-7029021

PATIENT
  Sex: Male
  Weight: 78 kg

DRUGS (3)
  1. REBIF [Suspect]
     Route: 058
     Dates: start: 20101201, end: 20111101
  2. IBUPROFEN (ADVIL) [Concomitant]
     Indication: PAIN
  3. REBIF [Suspect]
     Indication: MULTIPLE SCLEROSIS
     Route: 058
     Dates: start: 20031219, end: 20101201

REACTIONS (4)
  - STAPHYLOCOCCAL INFECTION [None]
  - IMPAIRED HEALING [None]
  - MENINGITIS BACTERIAL [None]
  - INJECTION SITE INFECTION [None]
